FAERS Safety Report 7951152-8 (Version None)
Quarter: 2011Q4

REPORT INFORMATION
  Report Type: 
  Country: None (occurrence: None)
  Receive Date: 20111201
  Receipt Date: 20110704
  Transmission Date: 20120403
  Serious: No
  Sender: FDA-Public Use
  Company Number: JP-BAYER-200910477BYL

PATIENT
  Age: 68 Year
  Sex: Male
  Weight: 72 kg

DRUGS (24)
  1. MUCOSTA [Concomitant]
     Indication: PROPHYLAXIS
     Dosage: AFTER BREAKFAST AND DINNER
     Route: 048
     Dates: start: 20080822, end: 20080825
  2. ARICEPT [Concomitant]
     Dosage: AFTER BREAKFAST
     Route: 048
     Dates: start: 20080822, end: 20080825
  3. SHAKUYAKUKANZOUTOU [Concomitant]
     Route: 048
     Dates: start: 20080822, end: 20080825
  4. DEPAKENE [Concomitant]
     Indication: PROPHYLAXIS
     Route: 048
     Dates: start: 20080822, end: 20080825
  5. SIGMART [Concomitant]
     Indication: PROPHYLAXIS
     Dosage: AFTER BREAKFAST AND DINNER
     Route: 048
     Dates: start: 20080822, end: 20080825
  6. ISOSORBIDE DINITRATE [Concomitant]
     Indication: PROPHYLAXIS
     Route: 062
     Dates: start: 20080822, end: 20080825
  7. ALLOPURINOL [Concomitant]
     Indication: PROPHYLAXIS
     Dosage: ATER BREAKFAST
     Route: 048
     Dates: start: 20080822, end: 20080825
  8. ARICEPT [Concomitant]
     Dosage: 1 DF (DAILY DOSE), , ORAL
     Route: 048
     Dates: start: 20081027, end: 20081104
  9. GASMOTIN [Concomitant]
     Indication: PROPHYLAXIS
     Dosage: ATER BREAKFAST,LUNCH AND DINNER
     Route: 048
     Dates: start: 20080822, end: 20080825
  10. LAC B [Concomitant]
     Indication: PROPHYLAXIS
     Dosage: AFTER BREAKFAST,LUNCH AND DINNER
     Route: 048
     Dates: start: 20080822, end: 20080825
  11. RINDERON-DP [Concomitant]
     Indication: PROPHYLAXIS
     Route: 061
     Dates: start: 20080822
  12. TRANDOLAPRIL [Concomitant]
     Route: 048
     Dates: start: 20080822, end: 20080825
  13. FAMOTIDINE [Concomitant]
     Indication: PROPHYLAXIS
     Route: 048
     Dates: start: 20080822, end: 20080825
  14. DEPAKENE [Concomitant]
     Dosage: 2 DF (DAILY DOSE), , ORAL
     Route: 048
     Dates: start: 20081027, end: 20081104
  15. GENTAMICIN SULFATE [Concomitant]
     Indication: PROPHYLAXIS
     Route: 061
     Dates: start: 20080822
  16. LOCOID [Concomitant]
     Indication: PROPHYLAXIS
     Route: 061
     Dates: start: 20080822
  17. ESTAZOLAM [Concomitant]
     Indication: PROPHYLAXIS
     Route: 048
     Dates: start: 20081027, end: 20081104
  18. NEXAVAR [Suspect]
     Dosage: 400 MG (DAILY DOSE), , ORAL
     Route: 048
     Dates: start: 20080611, end: 20080624
  19. NEXAVAR [Suspect]
     Dosage: 200 MG (DAILY DOSE), , ORAL
     Route: 048
     Dates: start: 20080625
  20. SHAKUYAKUKANZOUTOU [Concomitant]
     Indication: PROPHYLAXIS
     Dosage: 2 HOURS AFTER BREAKFAST,LUNCH AND DINNER
     Route: 048
     Dates: start: 20080822, end: 20080824
  21. DEPAS [Concomitant]
     Indication: PROPHYLAXIS
     Route: 048
     Dates: start: 20080822, end: 20080825
  22. DEPAS [Concomitant]
     Dosage: 1 DF (DAILY DOSE), , ORAL
     Route: 048
     Dates: start: 20081027, end: 20081104
  23. NEXAVAR [Suspect]
     Indication: RENAL CELL CARCINOMA
     Dosage: 200 MG (DAILY DOSE), , ORAL
     Route: 048
     Dates: start: 20080507, end: 20080610
  24. WARFARIN SODIUM [Concomitant]
     Indication: PROPHYLAXIS
     Dosage: AFTER BREAKFAST
     Route: 048
     Dates: start: 20080822, end: 20080825

REACTIONS (13)
  - HYPERTENSION [None]
  - BRADYCARDIA [None]
  - ALOPECIA [None]
  - PALMAR-PLANTAR ERYTHRODYSAESTHESIA SYNDROME [None]
  - ANAEMIA [None]
  - HYPOTHYROIDISM [None]
  - DIARRHOEA [None]
  - PLATELET COUNT DECREASED [None]
  - HYPERLIPASAEMIA [None]
  - MALAISE [None]
  - DECREASED APPETITE [None]
  - HYPERAMYLASAEMIA [None]
  - HAEMOGLOBIN DECREASED [None]
